FAERS Safety Report 9643474 (Version 1)
Quarter: 2013Q4

REPORT INFORMATION
  Report Type: Spontaneous
  Country: CA (occurrence: CA)
  Receive Date: 20131024
  Receipt Date: 20131024
  Transmission Date: 20140711
  Serious: Yes (Other)
  Sender: FDA-Public Use
  Company Number: CA-JNJFOC-20131014096

PATIENT
  Age: 79 Year
  Sex: Female

DRUGS (12)
  1. XARELTO [Suspect]
     Indication: THROMBOSIS PROPHYLAXIS
     Route: 048
  2. XARELTO [Suspect]
     Indication: THROMBOSIS PROPHYLAXIS
     Route: 048
     Dates: start: 20120201, end: 20120203
  3. XARELTO [Suspect]
     Indication: ANTICOAGULANT THERAPY
     Route: 048
     Dates: start: 20120201, end: 20120203
  4. XARELTO [Suspect]
     Indication: ANTICOAGULANT THERAPY
     Route: 048
  5. APO HYDRO [Concomitant]
     Indication: HYPERTENSION
     Route: 048
  6. ATORVASTATIN [Concomitant]
     Indication: PROPHYLAXIS
     Route: 065
  7. ATORVASTATIN [Concomitant]
     Indication: HYPERTENSION
     Route: 065
  8. RISEDRONATE SODIUM [Concomitant]
     Route: 065
  9. AMLODIPINE [Concomitant]
     Indication: PROPHYLAXIS
     Route: 065
  10. AMLODIPINE [Concomitant]
     Indication: HYPERTENSION
     Route: 065
  11. CELEBREX [Concomitant]
     Indication: ARTHRITIS
     Route: 048
  12. LANSOPRAZOLE [Concomitant]
     Indication: ABDOMINAL DISCOMFORT
     Route: 048

REACTIONS (10)
  - Bedridden [Recovered/Resolved]
  - Dizziness [Recovered/Resolved]
  - Dyspnoea [Recovered/Resolved]
  - Enlarged uvula [Recovered/Resolved]
  - Hyperhidrosis [Recovered/Resolved]
  - Pruritus [Recovered/Resolved]
  - Pyrexia [Recovered/Resolved]
  - Rash pruritic [Recovered/Resolved]
  - Wheezing [Recovered/Resolved]
  - Pharyngeal oedema [Recovered/Resolved]
